FAERS Safety Report 6859533-0 (Version None)
Quarter: 2010Q3

REPORT INFORMATION
  Report Type: 
  Country: None (occurrence: None)
  Receive Date: 20100719
  Receipt Date: 20080311
  Transmission Date: 20110219
  Serious: Yes (Other)
  Sender: FDA-Public Use
  Company Number: US-PFIZER INC-2008021008

PATIENT
  Sex: Male
  Weight: 72.6 kg

DRUGS (4)
  1. CHANTIX [Suspect]
     Indication: SMOKING CESSATION THERAPY
     Route: 048
     Dates: start: 20080118, end: 20080121
  2. VALSARTAN [Concomitant]
     Indication: HYPERTENSION
  3. SIMVASTATIN [Concomitant]
     Indication: BLOOD CHOLESTEROL INCREASED
  4. ACETYLSALICYLIC ACID [Concomitant]

REACTIONS (3)
  - ANGER [None]
  - EMOTIONAL DISORDER [None]
  - PSYCHOTIC DISORDER [None]
